FAERS Safety Report 6526859-X (Version None)
Quarter: 2010Q1

REPORT INFORMATION
  Report Type: 
  Country: None (occurrence: None)
  Receive Date: 20100105
  Receipt Date: 20091216
  Transmission Date: 20100710
  Serious: Yes (Other)
  Sender: FDA-Public Use
  Company Number: PHHY2009US56766

PATIENT
  Sex: Female
  Weight: 155 kg

DRUGS (1)
  1. RECLAST [Suspect]
     Dosage: 5 MG ONCE YEARLY
     Route: 042
     Dates: start: 20091204

REACTIONS (5)
  - CHEST DISCOMFORT [None]
  - INFLUENZA [None]
  - MYOCARDIAL INFARCTION [None]
  - NECK PAIN [None]
  - PAIN IN EXTREMITY [None]
